FAERS Safety Report 16573940 (Version 3)
Quarter: 2021Q1

REPORT INFORMATION
  Report Type: Spontaneous
  Country: DE (occurrence: DE)
  Receive Date: 20190715
  Receipt Date: 20210106
  Transmission Date: 20210419
  Serious: Yes (Hospitalization, Other)
  Sender: FDA-Public Use
  Company Number: DE-MYLANLABS-2019M1066170

PATIENT
  Sex: Female

DRUGS (85)
  1. VALSARTAN DURA [Suspect]
     Active Substance: VALSARTAN
     Indication: HYPERTENSION
     Dosage: 160 MILLIGRAM, QD
     Dates: start: 201610, end: 201706
  2. METOPROLOL RATIOPHARM              /00376902/ [Concomitant]
     Active Substance: METOPROLOL TARTRATE
     Dosage: UNK
     Dates: start: 20170109, end: 20170323
  3. RAMIPRIL. [Concomitant]
     Active Substance: RAMIPRIL
     Indication: PRODUCT USED FOR UNKNOWN INDICATION
     Dosage: UNK
     Dates: start: 20160412
  4. SKID [Concomitant]
     Active Substance: MINOCYCLINE HYDROCHLORIDE
     Indication: PRODUCT USED FOR UNKNOWN INDICATION
     Dosage: UNK
     Dates: start: 20161216
  5. DICLO 1A PHARMA [Concomitant]
     Active Substance: DICLOFENAC SODIUM
     Indication: PRODUCT USED FOR UNKNOWN INDICATION
     Dosage: UNK
     Dates: start: 20160303
  6. ARLEVERT [Concomitant]
     Active Substance: CINNARIZINE\DIMENHYDRINATE
     Dosage: UNK
  7. FELODIPIN [Concomitant]
     Active Substance: FELODIPINE
     Dosage: UNK
  8. CLARILIND [Concomitant]
     Active Substance: CLARITHROMYCIN
     Indication: ACUTE SINUSITIS
  9. L?THYROXIN ARISTO [Concomitant]
     Active Substance: LEVOTHYROXINE SODIUM
     Indication: AUTOIMMUNE THYROIDITIS
     Dosage: UNK
     Dates: start: 20160412
  10. L?THYROX HEXAL [Concomitant]
     Active Substance: LEVOTHYROXINE SODIUM
     Dosage: UNK
     Dates: start: 20170619, end: 20171115
  11. MINOCYCLIN RATIOPHARM [Concomitant]
     Active Substance: MINOCYCLINE HYDROCHLORIDE
     Indication: PRODUCT USED FOR UNKNOWN INDICATION
     Dosage: UNK
     Dates: start: 20170814
  12. FOSFOMYCIN EBERTH [Concomitant]
     Active Substance: FOSFOMYCIN TROMETHAMINE
     Indication: PRODUCT USED FOR UNKNOWN INDICATION
     Dosage: UNK
     Dates: start: 20170819
  13. SEDARISTON                         /00668701/ [Concomitant]
     Dosage: UNK
  14. CARMEN                             /00740901/ [Concomitant]
     Active Substance: CARBOPLATIN
     Dosage: UNK
  15. ERYTHROMYCIN. [Concomitant]
     Active Substance: ERYTHROMYCIN
     Dosage: UNK
  16. OPIPRAMOL [Concomitant]
     Active Substance: OPIPRAMOL
     Indication: PANIC DISORDER
     Dosage: UNK
  17. VALSARTAN DURA [Suspect]
     Active Substance: VALSARTAN
     Dosage: 240 MILLIGRAM, PM (NOT REPORTED THE EVENING TOTAL 240 MG DAILY)
     Dates: start: 201906, end: 201907
  18. METOPROLOL RATIOPHARM              /00376902/ [Concomitant]
     Active Substance: METOPROLOL TARTRATE
     Dosage: UNK
     Dates: start: 20170515, end: 20170619
  19. METOPROLOL RATIOPHARM              /00376902/ [Concomitant]
     Active Substance: METOPROLOL TARTRATE
     Dosage: UNK
     Dates: start: 20171115, end: 20180305
  20. FASTJEKT [Concomitant]
     Active Substance: EPINEPHRINE
     Dosage: UNK (AUTO INJECTOR)
  21. AVALOX [Concomitant]
     Active Substance: MOXIFLOXACIN HYDROCHLORIDE
     Indication: PNEUMONIA
     Dosage: UNK
  22. BEROTEC N [Concomitant]
     Active Substance: FENOTEROL HYDROBROMIDE
     Dosage: UNK
  23. VOTUM                              /01635402/ [Concomitant]
     Active Substance: OLMESARTAN MEDOXOMIL
     Dosage: UNK
  24. VALSARTAN. [Suspect]
     Active Substance: VALSARTAN
     Indication: HYPERTENSION
     Dosage: UNK
     Dates: start: 20181213, end: 201903
  25. SIMVA [Concomitant]
     Active Substance: SIMVASTATIN
     Dosage: UNK
     Dates: start: 20170410, end: 20170619
  26. METOPROLOL RATIOPHARM              /00376902/ [Concomitant]
     Active Substance: METOPROLOL TARTRATE
     Indication: HYPERTENSION
     Dosage: UNK
     Dates: start: 20161010, end: 20161117
  27. METOPROLOL RATIOPHARM              /00376902/ [Concomitant]
     Active Substance: METOPROLOL TARTRATE
     Dosage: UNK
     Dates: start: 20170814, end: 20171005
  28. METOPROLOL RATIOPHARM              /00376902/ [Concomitant]
     Active Substance: METOPROLOL TARTRATE
     Dosage: UNK
     Dates: start: 20180608
  29. METOPROLOL ABZ [Concomitant]
     Active Substance: METOPROLOL TARTRATE
     Indication: HYPERTENSION
     Dosage: UNK
     Dates: start: 20160419
  30. L?THYROX HEXAL [Concomitant]
     Active Substance: LEVOTHYROXINE SODIUM
     Dosage: UNK
     Dates: start: 20180305, end: 20180608
  31. SPIRIVA [Concomitant]
     Active Substance: TIOTROPIUM BROMIDE MONOHYDRATE
     Dosage: UNK
     Dates: start: 20171214, end: 20180305
  32. SPIRIVA [Concomitant]
     Active Substance: TIOTROPIUM BROMIDE MONOHYDRATE
     Dosage: UNK
     Dates: start: 20180608
  33. CEFUROXIM HEUMANN [Concomitant]
     Active Substance: CEFUROXIME AXETIL
     Indication: PRODUCT USED FOR UNKNOWN INDICATION
     Dosage: UNK
     Dates: start: 20170731
  34. CEFUROX BASICS SUN [Concomitant]
     Active Substance: CEFUROXIME AXETIL
     Indication: INFLUENZA LIKE ILLNESS
     Dosage: UNK
     Dates: start: 20160927, end: 20171005
  35. CELESTENE N [Concomitant]
     Active Substance: BETAMETHASONE
     Indication: PRODUCT USED FOR UNKNOWN INDICATION
     Dosage: UNK
     Dates: start: 20171012
  36. CANEPHRON                          /05532901/ [Concomitant]
     Dosage: UNK
  37. DICLAC                             /00372302/ [Concomitant]
     Active Substance: DICLOFENAC POTASSIUM
     Dosage: UNK
  38. NIFEDIPIN AL [Concomitant]
     Active Substance: NIFEDIPINE
     Dosage: UNK
  39. CIPROBETA [Concomitant]
     Active Substance: CIPROFLOXACIN HYDROCHLORIDE
     Indication: VULVOVAGINITIS
     Dosage: UNK
  40. VALSARTAN. [Suspect]
     Active Substance: VALSARTAN
     Indication: HYPERTENSION
     Dosage: UNK
     Dates: start: 20190716, end: 20191017
  41. SIMVA [Concomitant]
     Active Substance: SIMVASTATIN
     Indication: HYPERCHOLESTEROLAEMIA
     Dosage: UNK
     Dates: start: 20160512
  42. SIMVA [Concomitant]
     Active Substance: SIMVASTATIN
     Indication: HYPERCHOLESTEROLAEMIA
     Dosage: UNK
     Dates: start: 20161010, end: 20170109
  43. CLARILIND [Concomitant]
     Active Substance: CLARITHROMYCIN
     Indication: BRONCHITIS
     Dosage: UNK
     Dates: start: 20160310
  44. L?THYROXIN ARISTO [Concomitant]
     Active Substance: LEVOTHYROXINE SODIUM
     Indication: AUTOIMMUNE THYROIDITIS
     Dosage: UNK
     Dates: start: 20161010
  45. SPIRIVA [Concomitant]
     Active Substance: TIOTROPIUM BROMIDE MONOHYDRATE
     Dosage: UNK
     Dates: start: 20161117
  46. AZITHROMYCIN HEC [Concomitant]
     Active Substance: AZITHROMYCIN
     Indication: PRODUCT USED FOR UNKNOWN INDICATION
     Dosage: UNK
     Dates: start: 20160920
  47. DICLOFENAC RATIOPHARM              /00372302/ [Concomitant]
     Active Substance: DICLOFENAC SODIUM
     Indication: PRODUCT USED FOR UNKNOWN INDICATION
     Dosage: UNK
     Dates: start: 20171115, end: 20180608
  48. IBUPROFEN. [Concomitant]
     Active Substance: IBUPROFEN
     Dosage: UNK
  49. MINOCYCLINE [Concomitant]
     Active Substance: MINOCYCLINE HYDROCHLORIDE
     Indication: RASH PUSTULAR
     Dosage: UNK
  50. AZITHROMYCIN ANHYDROUS. [Concomitant]
     Active Substance: AZITHROMYCIN ANHYDROUS
     Indication: INGROWING NAIL
     Dosage: UNK
  51. LOPERAMID [Concomitant]
     Active Substance: LOPERAMIDE
     Dosage: UNK
  52. SPIRONOLACTONE. [Concomitant]
     Active Substance: SPIRONOLACTONE
     Dosage: UNK
  53. VALSARTAN DURA [Suspect]
     Active Substance: VALSARTAN
     Dosage: 240 MILLIGRAM, QD (1 IN MORNING AND 1/2 IN EVENING)
     Dates: start: 201709, end: 201811
  54. VALSARTAN DURA [Suspect]
     Active Substance: VALSARTAN
     Dosage: 80 MILLIGRAM, BID ((IN THE MORNING AND EVENING)
  55. VALSARTAN. [Suspect]
     Active Substance: VALSARTAN
     Indication: HYPERTENSION
     Dosage: UNK
     Dates: start: 20170816, end: 201709
  56. PREDNISOLON                        /00016201/ [Concomitant]
     Active Substance: PREDNISOLONE
     Indication: BRONCHITIS
     Dosage: UNK
     Dates: start: 20160404
  57. L?THYROXIN?HENNING [Concomitant]
     Active Substance: LEVOTHYROXINE SODIUM
     Indication: HYPOTHYROIDISM
  58. AMBROXOL [Concomitant]
     Active Substance: AMBROXOL
     Dosage: UNK
  59. BIOFANAL [Concomitant]
     Indication: VULVOVAGINAL MYCOTIC INFECTION
     Dosage: UNK
  60. AZITHROBETA [Concomitant]
     Active Substance: AZITHROMYCIN
     Indication: SINUSITIS
     Dosage: UNK
  61. LOSARTAN HENNIG [Concomitant]
     Dosage: UNK
  62. VALSARTAN. [Suspect]
     Active Substance: VALSARTAN
     Indication: HYPERTENSION
     Dosage: UNK
     Dates: start: 20190304, end: 20190423
  63. VALSARTAN. [Suspect]
     Active Substance: VALSARTAN
     Dosage: UNK
     Dates: start: 20190521, end: 20191021
  64. AMLODIPIN DEXCEL [Concomitant]
     Dosage: UNK
     Dates: start: 20171115
  65. L?THYROXIN?HENNING [Concomitant]
     Active Substance: LEVOTHYROXINE SODIUM
     Indication: INFECTED BITE
     Dosage: UNK
     Dates: start: 20160201
  66. L?THYROX HEXAL [Concomitant]
     Active Substance: LEVOTHYROXINE SODIUM
     Indication: PRODUCT USED FOR UNKNOWN INDICATION
     Dosage: UNK UNK, PRN
     Dates: start: 20170109, end: 20170410
  67. SPIRIVA [Concomitant]
     Active Substance: TIOTROPIUM BROMIDE MONOHYDRATE
     Indication: PRODUCT USED FOR UNKNOWN INDICATION
     Dosage: UNK
     Dates: start: 20161010, end: 20170210
  68. DECODERM TRI                       /01263901/ [Concomitant]
     Dosage: UNK
  69. CELECOXIB MICRO LABS [Concomitant]
     Dosage: UNK
  70. TRIAMGALEN [Concomitant]
     Active Substance: TRIAMCINOLONE ACETONIDE
     Dosage: UNK
  71. DEKRISTOL [Concomitant]
     Active Substance: CHOLECALCIFEROL
     Indication: HYPOVITAMINOSIS
     Dosage: UNK
  72. JELLIN NEOMYCIN [Concomitant]
     Dosage: UNK
  73. BRONCHICUM MONO CODEIN [Concomitant]
     Indication: COUGH
     Dosage: UNK
  74. ACEMUC [Concomitant]
     Dosage: UNK
  75. AMLODIPIN DEXCEL [Concomitant]
     Indication: HYPERTENSION
     Dosage: UNK
     Dates: start: 20161024, end: 20170109
  76. AMLODIPIN DEXCEL [Concomitant]
     Dosage: UNK
     Dates: start: 20170410, end: 20170619
  77. SPIRIVA [Concomitant]
     Active Substance: TIOTROPIUM BROMIDE MONOHYDRATE
     Dosage: UNK
     Dates: start: 20161216, end: 20170410
  78. SPIRIVA [Concomitant]
     Active Substance: TIOTROPIUM BROMIDE MONOHYDRATE
     Dosage: UNK
     Dates: start: 20170619, end: 20170914
  79. BERODUAL N [Concomitant]
     Active Substance: FENOTEROL HYDROBROMIDE\IPRATROPIUM BROMIDE
     Indication: DYSPNOEA
     Dosage: UNK
     Dates: start: 20160317, end: 20160920
  80. TAVOR (LORAZEPAM) [Concomitant]
     Active Substance: LORAZEPAM
     Indication: PRODUCT USED FOR UNKNOWN INDICATION
     Dosage: UNK UNK, BID
     Dates: start: 20180713
  81. JEXT [Concomitant]
     Active Substance: EPINEPHRINE BITARTRATE
     Indication: PRODUCT USED FOR UNKNOWN INDICATION
     Dosage: UNK
     Dates: start: 20171012
  82. PANTOPRAZOL HEUMANN [Concomitant]
     Active Substance: PANTOPRAZOLE SODIUM
     Indication: PRODUCT USED FOR UNKNOWN INDICATION
     Dosage: UNK
     Dates: start: 20161216
  83. FENISTIL [Concomitant]
     Active Substance: DIMETHINDENE
     Dosage: UNK
  84. DICLO                              /00063302/ [Concomitant]
     Indication: ARTHRALGIA
     Dosage: UNK
  85. IBUFLAM                            /00109201/ [Concomitant]
     Active Substance: IBUPROFEN
     Indication: PAIN IN EXTREMITY
     Dosage: UNK

REACTIONS (14)
  - Impaired quality of life [Not Recovered/Not Resolved]
  - Fear of disease [Unknown]
  - Sense of oppression [Unknown]
  - Depression [Not Recovered/Not Resolved]
  - Hyperhidrosis [Unknown]
  - Dizziness [Unknown]
  - Fatigue [Unknown]
  - Anxiety [Unknown]
  - Mental impairment [Not Recovered/Not Resolved]
  - Dyspnoea [Unknown]
  - Panic attack [Unknown]
  - Nausea [Unknown]
  - Vertigo [Unknown]
  - Hypertension [Unknown]
